FAERS Safety Report 7279736-3 (Version None)
Quarter: 2011Q1

REPORT INFORMATION
  Report Type: 
  Country: None (occurrence: None)
  Receive Date: 20110208
  Receipt Date: 20110128
  Transmission Date: 20110831
  Serious: Yes (Hospitalization, Other)
  Sender: FDA-Public Use
  Company Number: PHHY2011CA02812

PATIENT
  Age: 19 Month
  Sex: Female

DRUGS (1)
  1. DIOVAN [Suspect]
     Indication: HYPERTENSION
     Route: 064

REACTIONS (4)
  - RENAL IMPAIRMENT [None]
  - IMMUNE SYSTEM DISORDER [None]
  - SMALL FOR DATES BABY [None]
  - DRUG EXPOSURE DURING PREGNANCY [None]
